FAERS Safety Report 7030812-X (Version None)
Quarter: 2010Q4

REPORT INFORMATION
  Report Type: 
  Country: None (occurrence: None)
  Receive Date: 20101006
  Receipt Date: 20100929
  Transmission Date: 20110411
  Serious: No
  Sender: FDA-Public Use
  Company Number: US-PFIZER INC-2010124474

PATIENT
  Sex: Male
  Weight: 91 kg

DRUGS (5)
  1. SUTENT [Suspect]
     Indication: RENAL CELL CARCINOMA
     Dosage: 25 MG, UNK
     Route: 048
     Dates: start: 20100701
  2. SUTENT [Suspect]
     Indication: PANCREATIC CARCINOMA
  3. SUTENT [Suspect]
     Indication: ADRENAL CARCINOMA
  4. DOXAZOSIN [Concomitant]
     Indication: BLOOD PRESSURE INCREASED
     Dosage: 4 MG, UNK
  5. ENALAPRIL [Concomitant]
     Indication: BLOOD PRESSURE INCREASED
     Dosage: 5 MG, UNK

REACTIONS (3)
  - DIARRHOEA [None]
  - FATIGUE [None]
  - ORAL PAIN [None]
